FAERS Safety Report 9264290 (Version 1)
Quarter: 2013Q2

REPORT INFORMATION
  Report Type: Spontaneous
  Country: US (occurrence: US)
  Receive Date: 20130430
  Receipt Date: 20130430
  Transmission Date: 20140414
  Serious: Yes (Other)
  Sender: FDA-Public Use
  Company Number: US-ASTRAZENECA-2013SE29165

PATIENT
  Sex: Female

DRUGS (6)
  1. NEXIUM [Suspect]
     Indication: GASTRIC DISORDER
     Route: 048
  2. NEXIUM [Suspect]
     Indication: GASTRIC DISORDER
     Dosage: BEFORE EATING
     Route: 048
  3. CRESTOR [Suspect]
     Indication: BLOOD CHOLESTEROL ABNORMAL
     Route: 048
  4. CRESTOR [Suspect]
     Indication: BLOOD CHOLESTEROL ABNORMAL
     Route: 048
  5. VITAMIN D [Concomitant]
     Dosage: ONE EVERY WEEK
  6. BLOOD PRESSURE PILL [Concomitant]
     Indication: HYPERTENSION
     Dosage: WHEN NEEDED

REACTIONS (9)
  - Blood pressure ambulatory increased [Unknown]
  - Hypertension [Unknown]
  - Somnolence [Unknown]
  - Fibromyalgia [Unknown]
  - Blood pressure fluctuation [Unknown]
  - Arthritis [Unknown]
  - Hernia [Unknown]
  - Adverse event [Unknown]
  - Condition aggravated [Unknown]
